FAERS Safety Report 7609937-3 (Version None)
Quarter: 2011Q3

REPORT INFORMATION
  Report Type: 
  Country: None (occurrence: None)
  Receive Date: 20110714
  Receipt Date: 20101222
  Transmission Date: 20111222
  Serious: Yes (Death)
  Sender: FDA-Public Use
  Company Number: US-TYCO HEALTHCARE/MALLINCKRODT-T201002464

PATIENT
  Age: 23 Year
  Sex: Female

DRUGS (3)
  1. METHAMPHETAMINE HYDROCHLORIDE [Suspect]
  2. OXYCODONE HCL [Suspect]
     Dosage: UNK
  3. METHADOSE [Suspect]
     Dosage: UNK

REACTIONS (7)
  - PULMONARY CONGESTION [None]
  - UTERINE POLYP [None]
  - HEPATOMEGALY [None]
  - PULMONARY OEDEMA [None]
  - BRAIN OEDEMA [None]
  - TOXICITY TO VARIOUS AGENTS [None]
  - HEPATIC CONGESTION [None]
